FAERS Safety Report 8151812-2 (Version None)
Quarter: 2012Q1

REPORT INFORMATION
  Report Type: 
  Country: None (occurrence: None)
  Receive Date: 20120221
  Receipt Date: 20120209
  Transmission Date: 20120608
  Serious: No
  Sender: FDA-Public Use
  Company Number: US-BIOGENIDEC-2012BI005406

PATIENT
  Age: 45 Year
  Sex: Male

DRUGS (2)
  1. METASTATIN ( PRESUMED CHOLESTEROL LOWERING MEDICATION) [Concomitant]
     Indication: BLOOD CHOLESTEROL INCREASED
  2. TYSABRI [Suspect]
     Indication: MULTIPLE SCLEROSIS
     Route: 042
     Dates: start: 20111109

REACTIONS (1)
  - HEPATIC ENZYME INCREASED [None]
